FAERS Safety Report 17585941 (Version 1)
Quarter: 2020Q1

REPORT INFORMATION
  Report Type: Spontaneous
  Country: US (occurrence: US)
  Receive Date: 20200326
  Receipt Date: 20200326
  Transmission Date: 20200409
  Serious: Yes (Hospitalization, Disabling)
  Sender: FDA-Public Use
  Company Number: None

PATIENT
  Age: 78 Year
  Sex: Male

DRUGS (2)
  1. OXALIPLATIN. [Suspect]
     Active Substance: OXALIPLATIN
     Indication: COLON CANCER METASTATIC
     Dosage: ?          OTHER FREQUENCY:ONCE;?
     Route: 041
  2. LEUCOVORIN. [Concomitant]
     Active Substance: LEUCOVORIN
     Dates: start: 20190219

REACTIONS (7)
  - Chills [None]
  - Dehydration [None]
  - Renal failure [None]
  - Urine analysis abnormal [None]
  - Glossodynia [None]
  - Haematuria [None]
  - Swollen tongue [None]

NARRATIVE: CASE EVENT DATE: 20190219
